FAERS Safety Report 13036022 (Version 1)
Quarter: 2016Q4

REPORT INFORMATION
  Report Type: Report from Study
  Country: US (occurrence: US)
  Receive Date: 20161216
  Receipt Date: 20161216
  Transmission Date: 20170207
  Serious: Yes (Death, Other)
  Sender: FDA-Public Use
  Company Number: US-JNJFOC-20161124455

PATIENT
  Age: 64 Year
  Sex: Male

DRUGS (1)
  1. DARZALEX [Suspect]
     Active Substance: DARATUMUMAB
     Indication: PLASMA CELL MYELOMA
     Route: 042

REACTIONS (2)
  - Death [Fatal]
  - Hospice care [Not Recovered/Not Resolved]

NARRATIVE: CASE EVENT DATE: 201611
